FAERS Safety Report 11896639 (Version 2)
Quarter: 2016Q2

REPORT INFORMATION
  Report Type: Spontaneous
  Country: CA (occurrence: CA)
  Receive Date: 20160107
  Receipt Date: 20160616
  Transmission Date: 20160815
  Serious: Yes (Other)
  Sender: FDA-Public Use
  Company Number: CA-CONCORDIA PHARMACEUTICALS INC.-CO-PL-CA-2015-448

PATIENT
  Age: 65 Year
  Sex: Female

DRUGS (8)
  1. HYDROXYCHLOROQUINE SULFATE. [Suspect]
     Active Substance: HYDROXYCHLOROQUINE SULFATE
     Indication: RHEUMATOID ARTHRITIS
     Route: 065
  2. CORTISONE [Concomitant]
     Active Substance: CORTISONE\HYDROCORTISONE
  3. METHOTREXATE SODIUM. [Suspect]
     Active Substance: METHOTREXATE SODIUM
     Indication: RHEUMATOID ARTHRITIS
     Route: 048
     Dates: end: 201508
  4. SULFASALAZINE. [Suspect]
     Active Substance: SULFASALAZINE
     Indication: RHEUMATOID ARTHRITIS
     Route: 065
  5. PREDNISONE. [Concomitant]
     Active Substance: PREDNISONE
     Dates: start: 201505
  6. METHOTREXATE SODIUM. [Suspect]
     Active Substance: METHOTREXATE SODIUM
     Route: 048
     Dates: start: 20150821
  7. XELJANZ [Suspect]
     Active Substance: TOFACITINIB CITRATE
     Indication: RHEUMATOID ARTHRITIS
     Route: 048
     Dates: start: 20141217
  8. LEFLUNOMIDE. [Suspect]
     Active Substance: LEFLUNOMIDE
     Indication: RHEUMATOID ARTHRITIS
     Route: 065

REACTIONS (10)
  - Rheumatoid arthritis [Unknown]
  - Peripheral swelling [Not Recovered/Not Resolved]
  - Nodule [Not Recovered/Not Resolved]
  - Condition aggravated [None]
  - Contusion [Unknown]
  - Pain [Unknown]
  - Drug effect variable [Unknown]
  - Urinary tract infection [Not Recovered/Not Resolved]
  - Activities of daily living impaired [Unknown]
  - Drug ineffective [Unknown]

NARRATIVE: CASE EVENT DATE: 201501
